FAERS Safety Report 12187592 (Version 1)
Quarter: 2016Q1

REPORT INFORMATION
  Report Type: Spontaneous
  Country: CA (occurrence: None)
  Receive Date: 20160316
  Receipt Date: 20160316
  Transmission Date: 20160526
  Serious: No
  Sender: FDA-Public Use
  Company Number: None

PATIENT
  Age: 78 Year
  Sex: Female
  Weight: 67.13 kg

DRUGS (10)
  1. SDZ-VALSARTAN HCT [Suspect]
     Active Substance: HYDROCHLOROTHIAZIDE\VALSARTAN
     Indication: PRODUCT USED FOR UNKNOWN INDICATION
     Dosage: 160MG/12.5MG  12.5MG 1 PILL ONCE A DAY MOUTH
     Route: 048
     Dates: start: 20160205, end: 20160213
  2. APD-OMEPRAZOLE [Concomitant]
  3. CALTRADE PLUS [Concomitant]
  4. RATIO-DOMPERIDONE [Concomitant]
  5. TEVA-TRIAMZID [Concomitant]
  6. LIPIDOR [Concomitant]
  7. SYNTROID [Concomitant]
  8. APD-K POTASSIUM [Concomitant]
  9. DIOVAN HCT [Suspect]
     Active Substance: HYDROCHLOROTHIAZIDE\VALSARTAN
     Dosage: 160MG/12.5MG 12.5MG 1 PILL ONCE A DAY MOUTH
     Route: 048
     Dates: start: 20160205, end: 20160213
  10. VITAMIN D3 [Concomitant]
     Active Substance: CHOLECALCIFEROL

REACTIONS (7)
  - Flatulence [None]
  - Urinary straining [None]
  - Chest discomfort [None]
  - Head discomfort [None]
  - Blood pressure increased [None]
  - Fluid retention [None]
  - Eructation [None]
